FAERS Safety Report 8188723-2 (Version None)
Quarter: 2012Q1

REPORT INFORMATION
  Report Type: 
  Country: None (occurrence: None)
  Receive Date: 20120306
  Receipt Date: 20120222
  Transmission Date: 20120608
  Serious: Yes (Other)
  Sender: FDA-Public Use
  Company Number: CHPA2012US003394

PATIENT
  Age: 75 Year
  Sex: Female

DRUGS (1)
  1. MAALOX MS TOTAL STOMACH RELIEF [Suspect]
     Indication: GASTROOESOPHAGEAL REFLUX DISEASE
     Dosage: 2 SWALLOWS, 1-2 TIMES PER DAY PRN
     Route: 048
     Dates: start: 20120117, end: 20120212

REACTIONS (4)
  - OFF LABEL USE [None]
  - FAECES DISCOLOURED [None]
  - WRONG TECHNIQUE IN DRUG USAGE PROCESS [None]
  - EXPIRED DRUG ADMINISTERED [None]
